FAERS Safety Report 4984893-5 (Version None)
Quarter: 2006Q2

REPORT INFORMATION
  Report Type: 
  Country: None (occurrence: None)
  Receive Date: 20060426
  Receipt Date: 20060426
  Transmission Date: 20061013
  Serious: Yes (Hospitalization)
  Sender: FDA-Public Use
  Company Number: None

PATIENT
  Age: 73 Year
  Sex: Female

DRUGS (7)
  1. LINEZOLID [Suspect]
     Indication: STAPHYLOCOCCAL INFECTION
     Dosage: 600 MG Q12 H IV
     Route: 042
  2. ASPIRIN [Concomitant]
  3. LASIX [Concomitant]
  4. LOPID [Concomitant]
  5. ALTACE [Concomitant]
  6. SYNTHROID [Concomitant]
  7. LEVAQUIN [Concomitant]

REACTIONS (1)
  - ANAEMIA [None]
